FAERS Safety Report 19399092 (Version 1)
Quarter: 2021Q2

REPORT INFORMATION
  Report Type: Spontaneous
  Country: US (occurrence: US)
  Receive Date: 20210610
  Receipt Date: 20210610
  Transmission Date: 20210717
  Serious: Yes (Death)
  Sender: FDA-Public Use
  Company Number: None

PATIENT
  Age: 79 Year
  Sex: Female

DRUGS (8)
  1. FERROUS SULFATE. [Concomitant]
     Active Substance: FERROUS SULFATE
  2. AZELASTINE 0.1% NASAL SPRAY [Concomitant]
  3. AMIODARONE [Concomitant]
     Active Substance: AMIODARONE
  4. IPRATROPIUM/ALBUTEROL INHALER [Concomitant]
  5. BACITRACIN OINTMENT [Concomitant]
     Active Substance: BACITRACIN
  6. NUPLAZID [Suspect]
     Active Substance: PIMAVANSERIN TARTRATE
     Indication: PARKINSON^S DISEASE
     Route: 048
     Dates: start: 20200220
  7. LOSARTAN. [Concomitant]
     Active Substance: LOSARTAN
  8. OXYBUTININ [Concomitant]
     Active Substance: OXYBUTYNIN

REACTIONS (1)
  - Death [None]

NARRATIVE: CASE EVENT DATE: 20210607
